FAERS Safety Report 18266729 (Version 1)
Quarter: 2020Q3

REPORT INFORMATION
  Report Type: Spontaneous
  Country: US (occurrence: US)
  Receive Date: 20200914
  Receipt Date: 20200914
  Transmission Date: 20201103
  Serious: Yes (Hospitalization)
  Sender: FDA-Public Use
  Company Number: None

PATIENT
  Age: 55 Year
  Sex: Female

DRUGS (17)
  1. POT CHLORIDE ER [Concomitant]
  2. MAGNESIUM [Concomitant]
     Active Substance: MAGNESIUM
  3. METHYLPRED [Concomitant]
     Active Substance: METHYLPREDNISOLONE
  4. SILDENAFIL 20MG TAB [Suspect]
     Active Substance: SILDENAFIL
     Indication: PULMONARY HYPERTENSION
     Route: 048
     Dates: start: 20180313
  5. MIDODRINE [Concomitant]
     Active Substance: MIDODRINE
  6. COLCHICINE. [Concomitant]
     Active Substance: COLCHICINE
  7. REMODULIN [Concomitant]
     Active Substance: TREPROSTINIL
  8. ATORVASTATIN [Concomitant]
     Active Substance: ATORVASTATIN
  9. FUROSEMIDE. [Concomitant]
     Active Substance: FUROSEMIDE
  10. PROGESTERONE. [Concomitant]
     Active Substance: PROGESTERONE
  11. OMEPRAZOLE. [Concomitant]
     Active Substance: OMEPRAZOLE
  12. SYNTHROID [Concomitant]
     Active Substance: LEVOTHYROXINE SODIUM
  13. ANTACID [Concomitant]
     Active Substance: ALUMINUM HYDROXIDE\CALCIUM CARBONATE\DIMETHICONE\MAGNESIUM HYDROXIDE
  14. DOXYCYCL HYC [Concomitant]
  15. LOPERAMIDE [Concomitant]
     Active Substance: LOPERAMIDE
  16. POT CL MICRO ER [Concomitant]
  17. TYVASO [Concomitant]
     Active Substance: TREPROSTINIL

REACTIONS (1)
  - Appendicitis perforated [None]

NARRATIVE: CASE EVENT DATE: 20200701
